FAERS Safety Report 6231308-5 (Version None)
Quarter: 2009Q2

REPORT INFORMATION
  Report Type: 
  Country: None (occurrence: None)
  Receive Date: 20090616
  Receipt Date: 20090604
  Transmission Date: 20091009
  Serious: Yes (Hospitalization)
  Sender: FDA-Public Use
  Company Number: CA-PFIZER INC-2009215195

PATIENT
  Age: 57 Year

DRUGS (6)
  1. VARENICLINE TARTRATE [Suspect]
     Dosage: 1 MG, 2X/DAY
     Route: 048
  2. PMS-CONJUGATED ESTROGENS [Concomitant]
     Dosage: UNK
     Route: 048
     Dates: start: 19981207
  3. PERCOCET [Concomitant]
     Dosage: UNK
     Route: 048
     Dates: start: 20060412
  4. CELECOXIB [Concomitant]
     Indication: ARTHRITIS
     Dosage: UNK
     Route: 048
     Dates: start: 20090413
  5. ROSUVASTATIN [Concomitant]
     Dosage: UNK
     Route: 048
     Dates: start: 20090225
  6. QUETIAPINE FUMARATE [Concomitant]
     Indication: DEPRESSION
     Dosage: UNK
     Route: 048
     Dates: start: 20051201

REACTIONS (1)
  - INTENTIONAL OVERDOSE [None]
